FAERS Safety Report 8014742-2 (Version None)
Quarter: 2011Q4

REPORT INFORMATION
  Report Type: 
  Country: None (occurrence: None)
  Receive Date: 20111229
  Receipt Date: 20111219
  Transmission Date: 20120403
  Serious: Yes (Hospitalization, Other)
  Sender: FDA-Public Use
  Company Number: US-CELGENEUS-163-21880-11111608

PATIENT
  Sex: Male
  Weight: 66.193 kg

DRUGS (8)
  1. REVLIMID [Suspect]
     Dosage: 5 MILLIGRAM
     Route: 048
     Dates: start: 20111101
  2. ASPIRIN [Concomitant]
     Route: 065
  3. CRESTOR [Concomitant]
     Route: 065
  4. MULTI-VITAMINS [Concomitant]
     Route: 065
  5. METOPROLOL SUCCINATE [Concomitant]
     Route: 065
  6. LISINOPRIL [Concomitant]
     Route: 065
  7. REVLIMID [Suspect]
     Dosage: 5 MILLIGRAM
     Route: 048
     Dates: start: 20090928
  8. REVLIMID [Suspect]
     Dosage: 5 MILLIGRAM
     Route: 048

REACTIONS (6)
  - DIARRHOEA [None]
  - THROMBOCYTOPENIA [None]
  - HYPOAESTHESIA [None]
  - SLOW SPEECH [None]
  - LEUKOPENIA [None]
  - NEUTROPHIL COUNT DECREASED [None]
